FAERS Safety Report 5119563-6 (Version None)
Quarter: 2006Q3

REPORT INFORMATION
  Report Type: 
  Country: None (occurrence: None)
  Receive Date: 20060928
  Receipt Date: 20060912
  Transmission Date: 20061208
  Serious: Yes (Hospitalization, Other)
  Sender: FDA-Public Use
  Company Number: 2006006094

PATIENT
  Age: 39 Year
  Sex: Female
  Weight: 129.2752 kg

DRUGS (1)
  1. BEXTRA [Suspect]
     Indication: UTERINE LEIOMYOMA
     Dosage: 20 MG (20 MG, 1 IN 1 D), ORAL
     Route: 048
     Dates: start: 20040701, end: 20041201

REACTIONS (2)
  - ANGINA PECTORIS [None]
  - CEREBROVASCULAR ACCIDENT [None]
